FAERS Safety Report 16237832 (Version 1)
Quarter: 2019Q2

REPORT INFORMATION
  Report Type: Spontaneous
  Country: GB (occurrence: GB)
  Receive Date: 20190425
  Receipt Date: 20190425
  Transmission Date: 20190711
  Serious: Yes (Other)
  Sender: FDA-Public Use
  Company Number: GB-CATALYST PHARMACEUTICALS, INC-2019CAT00102

PATIENT

DRUGS (1)
  1. FIRDAPSE [Suspect]
     Active Substance: AMIFAMPRIDINE
     Dosage: UNK

REACTIONS (1)
  - Myasthenia gravis crisis [Unknown]
